FAERS Safety Report 6832334-5 (Version None)
Quarter: 2010Q3

REPORT INFORMATION
  Report Type: 
  Country: None (occurrence: None)
  Receive Date: 20100712
  Receipt Date: 20100701
  Transmission Date: 20110219
  Serious: Yes (Other)
  Sender: FDA-Public Use
  Company Number: JP-PFIZER INC-2010003179

PATIENT
  Age: 57 Year
  Sex: Male
  Weight: 68 kg

DRUGS (7)
  1. GABAPEN [Suspect]
     Indication: PAIN
     Dosage: 200 MG, 3X/DAY
     Route: 048
     Dates: start: 20091104, end: 20091206
  2. GABAPEN [Suspect]
     Dosage: 1200 MG, 4X/DAY
     Dates: start: 20091206, end: 20091228
  3. CEROCRAL [Concomitant]
     Indication: ANALGESIC THERAPY
     Dosage: UNK
     Route: 048
  4. OXYCODONE HCL [Concomitant]
     Indication: PAIN
     Dosage: UNK
     Route: 048
  5. FENTANYL [Concomitant]
     Dosage: UNK
     Route: 062
     Dates: start: 20090723
  6. DECADRON [Concomitant]
     Dosage: UNK
     Route: 048
     Dates: start: 20090723
  7. DEPAS [Concomitant]
     Dosage: UNK
     Route: 048
     Dates: start: 20081101

REACTIONS (5)
  - ANXIETY [None]
  - DRUG INEFFECTIVE [None]
  - HALLUCINATION [None]
  - RESTLESSNESS [None]
  - WITHDRAWAL SYNDROME [None]
